FAERS Safety Report 4963304-X (Version None)
Quarter: 2006Q2

REPORT INFORMATION
  Report Type: 
  Country: None (occurrence: None)
  Receive Date: 20060404
  Receipt Date: 20060404
  Transmission Date: 20061013
  Serious: No
  Sender: FDA-Public Use
  Company Number: None

PATIENT
  Age: 58 Year
  Sex: Male
  Weight: 111.36 kg

DRUGS (1)
  1. VANCOMYCIN [Suspect]
     Indication: ARTHRITIS BACTERIAL
     Dosage: 1 GM Q 12 HR IV
     Route: 042
     Dates: start: 20060318, end: 20060403

REACTIONS (1)
  - RASH GENERALISED [None]
